FAERS Safety Report 9247937 (Version 1)
Quarter: 2013Q2

REPORT INFORMATION
  Report Type: Spontaneous
  Country: US (occurrence: US)
  Receive Date: 20130423
  Receipt Date: 20130423
  Transmission Date: 20140414
  Serious: No
  Sender: FDA-Public Use
  Company Number: US-MYLANLABS-2012S1022242

PATIENT
  Age: 69 Year
  Sex: Female
  Weight: 43.09 kg

DRUGS (6)
  1. IPRATROPIUM BROMIDE AND ALBUTEROL SULFATE INHALATION SOLUTION [Suspect]
     Indication: CHRONIC OBSTRUCTIVE PULMONARY DISEASE
     Route: 055
  2. ALBUTEROL [Concomitant]
     Indication: CHRONIC OBSTRUCTIVE PULMONARY DISEASE
     Dosage: SOLUTION
  3. SPIRIVA [Concomitant]
     Indication: CHRONIC OBSTRUCTIVE PULMONARY DISEASE
  4. ASMANEX [Concomitant]
     Indication: CHRONIC OBSTRUCTIVE PULMONARY DISEASE
  5. SYNTHROID [Concomitant]
     Indication: CHRONIC OBSTRUCTIVE PULMONARY DISEASE
  6. OXYGEN [Concomitant]

REACTIONS (3)
  - Dyspnoea [Recovered/Resolved]
  - Discomfort [Recovered/Resolved]
  - Unevaluable event [Recovered/Resolved]
